FAERS Safety Report 11012670 (Version 1)
Quarter: 2015Q2

REPORT INFORMATION
  Report Type: Spontaneous
  Country: TR (occurrence: None)
  Receive Date: 20150409
  Receipt Date: 20150409
  Transmission Date: 20150821
  Serious: Yes (Death, Other)
  Sender: FDA-Public Use
  Company Number: TR-2015VAL000244

PATIENT
  Age: 63 Year
  Sex: Male

DRUGS (1)
  1. BROMOCRIPTINE MESYLATE (BROMOCRIPTINE MESYLATE) UNKNOWN [Suspect]
     Active Substance: BROMOCRIPTINE MESYLATE
     Indication: NEUROLEPTIC MALIGNANT SYNDROME

REACTIONS (2)
  - Drug ineffective [None]
  - Cardio-respiratory arrest [None]
